FAERS Safety Report 8028016-7 (Version None)
Quarter: 2012Q1

REPORT INFORMATION
  Report Type: 
  Country: None (occurrence: None)
  Receive Date: 20120104
  Receipt Date: 20111222
  Transmission Date: 20120608
  Serious: Yes (Hospitalization)
  Sender: FDA-Public Use
  Company Number: 2011AL000100

PATIENT

DRUGS (1)
  1. FOLOTYN [Suspect]
     Indication: T-CELL LYMPHOMA
     Dates: start: 20110401

REACTIONS (1)
  - CELLULITIS [None]
